FAERS Safety Report 5207113-5 (Version None)
Quarter: 2007Q1

REPORT INFORMATION
  Report Type: 
  Country: None (occurrence: None)
  Receive Date: 20070110
  Receipt Date: 20070103
  Transmission Date: 20070707
  Serious: Yes (Death)
  Sender: FDA-Public Use
  Company Number: 20063396

PATIENT
  Sex: Female

DRUGS (4)
  1. LIORESAL [Suspect]
     Indication: MUSCLE SPASTICITY
     Dosage: 260 MCG, DAILY, INTRATHECAL
     Route: 037
  2. REGLAN [Concomitant]
  3. TAGAMET [Concomitant]
  4. MIRALAX [Concomitant]

REACTIONS (3)
  - CARDIO-RESPIRATORY ARREST [None]
  - MEDICAL DEVICE COMPLICATION [None]
  - SKIN DISCOLOURATION [None]
